FAERS Safety Report 20353369 (Version 1)
Quarter: 2022Q1

REPORT INFORMATION
  Report Type: Spontaneous
  Country: US (occurrence: US)
  Receive Date: 20220119
  Receipt Date: 20220119
  Transmission Date: 20220424
  Serious: No
  Sender: FDA-Public Use
  Company Number: US-BIOMARINAP-US-2022-140628

PATIENT
  Age: 13 Year
  Sex: Female
  Weight: 23 kg

DRUGS (3)
  1. NAGLAZYME [Suspect]
     Active Substance: GALSULFASE
     Indication: Mucopolysaccharidosis VI
     Dosage: 25 MILLIGRAM, QW
     Route: 042
     Dates: start: 2015
  2. NAGLAZYME [Suspect]
     Active Substance: GALSULFASE
     Dosage: 25 MILLIGRAM, QW
     Route: 042
     Dates: start: 20100501
  3. NAGLAZYME [Suspect]
     Active Substance: GALSULFASE
     Dosage: UNK UNK, QW
     Route: 042
     Dates: start: 201004

REACTIONS (4)
  - COVID-19 [Not Recovered/Not Resolved]
  - Oropharyngeal pain [Not Recovered/Not Resolved]
  - Fatigue [Not Recovered/Not Resolved]
  - Pyrexia [Not Recovered/Not Resolved]

NARRATIVE: CASE EVENT DATE: 20220105
